FAERS Safety Report 8552359-1 (Version None)
Quarter: 2012Q3

REPORT INFORMATION
  Report Type: 
  Country: None (occurrence: None)
  Receive Date: 20120731
  Receipt Date: 20120723
  Transmission Date: 20120928
  Serious: Yes (Life-Threatening, Other)
  Sender: FDA-Public Use
  Company Number: FR-CELGENEUS-056-22393-12061747

PATIENT
  Sex: Female
  Weight: 65 kg

DRUGS (6)
  1. ISTODAX [Suspect]
     Indication: PERIPHERAL T-CELL LYMPHOMA UNSPECIFIED
     Dosage: 22 MILLIGRAM
     Route: 065
     Dates: start: 20120606, end: 20120606
  2. VINCRISTINE [Suspect]
     Indication: PERIPHERAL T-CELL LYMPHOMA UNSPECIFIED
     Route: 065
     Dates: start: 20120606, end: 20120606
  3. GEMOX [Concomitant]
     Route: 065
     Dates: start: 20120627
  4. PREDNISONE TAB [Suspect]
     Indication: PERIPHERAL T-CELL LYMPHOMA UNSPECIFIED
     Route: 065
     Dates: start: 20120606, end: 20120606
  5. ADRIAMYCIN PFS [Suspect]
     Indication: PERIPHERAL T-CELL LYMPHOMA UNSPECIFIED
     Route: 065
     Dates: start: 20120606, end: 20120606
  6. CYCLOPHOSPHAMIDE [Suspect]
     Indication: PERIPHERAL T-CELL LYMPHOMA UNSPECIFIED
     Route: 065
     Dates: start: 20120606, end: 20120606

REACTIONS (2)
  - PULMONARY OEDEMA [None]
  - MYOCARDIAL INFARCTION [None]
